FAERS Safety Report 22386196 (Version 1)
Quarter: 2023Q2

REPORT INFORMATION
  Report Type: Spontaneous
  Country: US (occurrence: US)
  Receive Date: 20230530
  Receipt Date: 20230530
  Transmission Date: 20230722
  Serious: No
  Sender: FDA-Public Use
  Company Number: US-BAUSCH-BL-2023-007937

PATIENT
  Age: 80 Year
  Sex: Female
  Weight: 93.44 kg

DRUGS (7)
  1. CARDIZEM [Suspect]
     Active Substance: DILTIAZEM HYDROCHLORIDE
     Indication: Product used for unknown indication
     Dosage: 120 MG AT BEDTIME
     Route: 065
  2. VYNDAMAX [Concomitant]
     Active Substance: TAFAMIDIS
     Indication: Product used for unknown indication
     Dosage: TAKES 61MG EVERY MORNING, RIGHT BEFORE LUNCH
     Route: 065
  3. LOSARTAN [Concomitant]
     Active Substance: LOSARTAN
     Indication: Product used for unknown indication
     Dosage: HAS BEEN ON FOR ABOUT 7-8 YEARS
     Route: 065
  4. LOSATAL [Concomitant]
     Indication: Product used for unknown indication
     Dosage: WAS TAKING AND THEY DOUBLED IT.
     Route: 065
  5. LASIX [Concomitant]
     Active Substance: FUROSEMIDE
     Indication: Product used for unknown indication
     Dosage: STARTED IN 2008 OR 2009 AFTER A SURGERY AND SHE HAD ?FLUID. THINKS IT WAS HER KNEE
     Route: 065
  6. MAGNESIUM [Concomitant]
     Active Substance: MAGNESIUM
     Indication: Product used for unknown indication
     Dosage: TAKING SINCE SHE STARTED HAVING HEART PROBLEMS ABOUT 5 ?YEARS AGO
     Route: 065
  7. SPIRONOLACTONE [Concomitant]
     Active Substance: SPIRONOLACTONE
     Indication: Product used for unknown indication
     Dosage: STARTED AFTER HER PACEMAKER WAS PLACED 15/SEP/2022, 25MG OD IN MORNING WITH HER SUGAR MEDICATIONS
     Route: 065

REACTIONS (1)
  - Drug ineffective [Unknown]
